FAERS Safety Report 11835505 (Version 1)
Quarter: 2015Q4

REPORT INFORMATION
  Report Type: Spontaneous
  Country: US (occurrence: None)
  Receive Date: 20151214
  Receipt Date: 20151214
  Transmission Date: 20160305
  Serious: Yes (Disabling)
  Sender: FDA-Public Use
  Company Number: None

PATIENT
  Age: 37 Year
  Sex: Male
  Weight: 80.74 kg

DRUGS (1)
  1. DEXTROAMPHETAMINE SULFATE 10 MG MALLINCKRODT [Suspect]
     Active Substance: DEXTROAMPHETAMINE SULFATE
     Indication: NARCOLEPSY
     Dosage: 5 PILLS
     Route: 048
     Dates: start: 20151210, end: 20151212

REACTIONS (5)
  - Drug ineffective [None]
  - Therapy change [None]
  - Product quality issue [None]
  - Nausea [None]
  - Tremor [None]

NARRATIVE: CASE EVENT DATE: 20151210
